FAERS Safety Report 8281844-5 (Version None)
Quarter: 2012Q2

REPORT INFORMATION
  Report Type: 
  Country: None (occurrence: None)
  Receive Date: 20120413
  Receipt Date: 20120409
  Transmission Date: 20120825
  Serious: Yes (Hospitalization, Other)
  Sender: FDA-Public Use
  Company Number: PHHY2012MX026099

PATIENT
  Sex: Female

DRUGS (4)
  1. ZOLEDRONOC ACID [Suspect]
     Indication: OSTEOPOROSIS
     Dosage: 5 MG/100 ML EACH YEAR
     Route: 042
     Dates: start: 20100322
  2. ZOLEDRONOC ACID [Suspect]
     Dosage: 5 MG/100 ML EACH YEAR
     Route: 042
     Dates: start: 20110301
  3. TENORETIC 100 [Concomitant]
     Indication: HYPERTENSION
  4. ATACAND HCT [Concomitant]
     Indication: HYPERTENSION

REACTIONS (4)
  - NERVE COMPRESSION [None]
  - PAIN [None]
  - GAIT DISTURBANCE [None]
  - WOUND INFECTION [None]
